FAERS Safety Report 8131318 (Version 2)
Quarter: 2014Q2

REPORT INFORMATION
  Report Type: Spontaneous
  Country: US (occurrence: US)
  Receive Date: 20110912
  Receipt Date: 20140624
  Transmission Date: 20141212
  Serious: Yes (Hospitalization)
  Sender: FDA-Public Use
  Company Number: US-GLAXOSMITHKLINE-A0882809A

PATIENT
  Sex: Female
  Weight: 75 kg

DRUGS (8)
  1. AVANDARYL [Suspect]
     Indication: DIABETES MELLITUS
     Dosage: 1TAB TWICE PER DAY
     Route: 048
     Dates: start: 20070111, end: 201005
  2. AVANDIA [Suspect]
     Indication: DIABETES MELLITUS
     Route: 048
     Dates: start: 20100518
  3. LISINOPRIL [Concomitant]
  4. SYNTHROID [Concomitant]
  5. METFORMIN [Concomitant]
  6. FOSAMAX [Concomitant]
  7. ASPIRIN [Concomitant]
  8. NITROGLYCERIN [Concomitant]

REACTIONS (3)
  - Aortic valve incompetence [Recovered/Resolved]
  - Atrial septal defect [Unknown]
  - Coronary artery disease [Unknown]
